FAERS Safety Report 7384035-5 (Version None)
Quarter: 2011Q1

REPORT INFORMATION
  Report Type: 
  Country: None (occurrence: None)
  Receive Date: 20110330
  Receipt Date: 20110328
  Transmission Date: 20110831
  Serious: Yes (Hospitalization)
  Sender: FDA-Public Use
  Company Number: US-ABBOTT-11P-163-0714669-00

PATIENT
  Sex: Female
  Weight: 90.346 kg

DRUGS (14)
  1. PAXIL [Concomitant]
     Indication: DEPRESSION
  2. NEXIUM [Concomitant]
     Indication: GASTROOESOPHAGEAL REFLUX DISEASE
  3. VITAMIN D [Concomitant]
     Indication: VITAMIN SUPPLEMENTATION
  4. FOLIC ACID [Concomitant]
     Indication: RHEUMATOID ARTHRITIS
     Dosage: 6 DAYS A WEEK.
  5. ASPIRIN [Concomitant]
     Indication: PRODUCT USED FOR UNKNOWN INDICATION
  6. HYDROCHLOROT [Concomitant]
     Indication: PRODUCT USED FOR UNKNOWN INDICATION
  7. HUMIRA [Suspect]
     Indication: RHEUMATOID ARTHRITIS
     Dates: start: 20100801, end: 20110101
  8. CALCIUM [Concomitant]
     Indication: MINERAL SUPPLEMENTATION
     Dosage: 2.5 TABS
  9. NADOLOL [Concomitant]
     Indication: HYPERTENSION
     Dosage: 1.5 TABS
  10. METHOTREXATE [Concomitant]
     Indication: RHEUMATOID ARTHRITIS
     Dosage: 4 TABS ON WEDNESDAY.
  11. VITAMIN D [Concomitant]
     Dosage: 50,000MG
  12. PREDNISONE [Concomitant]
     Indication: RHEUMATOID ARTHRITIS
  13. HYDROXYCHLOROQUINE SULFATE [Concomitant]
     Indication: RHEUMATOID ARTHRITIS
  14. BUSPIRONE HCL [Concomitant]
     Indication: DEPRESSION

REACTIONS (8)
  - DYSPNOEA [None]
  - DISORIENTATION [None]
  - LARYNGITIS [None]
  - DYSPHONIA [None]
  - TRACHEITIS [None]
  - APHONIA [None]
  - TRACHEAL OEDEMA [None]
  - URINARY TRACT INFECTION [None]
